FAERS Safety Report 7523891-4 (Version None)
Quarter: 2011Q2

REPORT INFORMATION
  Report Type: 
  Country: None (occurrence: None)
  Receive Date: 20110603
  Receipt Date: 20110517
  Transmission Date: 20111010
  Serious: Yes (Life-Threatening)
  Sender: FDA-Public Use
  Company Number: JP-MERCK-1105USA02365

PATIENT
  Age: 29 Year
  Sex: Female

DRUGS (6)
  1. HYDROCORTONE [Suspect]
     Route: 042
     Dates: start: 20090810, end: 20091010
  2. HYDROCORTONE [Suspect]
     Indication: TINNITUS
     Route: 042
     Dates: start: 20081009, end: 20081009
  3. HYDROCORTONE [Suspect]
     Route: 042
     Dates: start: 20090810, end: 20091010
  4. HYDROCORTONE [Suspect]
     Route: 042
     Dates: start: 20080908, end: 20080908
  5. HYDROCORTONE [Suspect]
     Indication: SKIN TEST
     Route: 042
     Dates: start: 20081009, end: 20081009
  6. HYDROCORTONE [Suspect]
     Route: 042
     Dates: start: 20080908, end: 20080908

REACTIONS (2)
  - ANAPHYLACTIC SHOCK [None]
  - SKIN TEST POSITIVE [None]
